FAERS Safety Report 22112991 (Version 2)
Quarter: 2023Q2

REPORT INFORMATION
  Report Type: Spontaneous
  Country: CA (occurrence: CA)
  Receive Date: 20230320
  Receipt Date: 20230510
  Transmission Date: 20230722
  Serious: Yes (Hospitalization)
  Sender: FDA-Public Use
  Company Number: CA-CELLTRION INC.-2022CA001455

PATIENT

DRUGS (4)
  1. INFLECTRA [Suspect]
     Active Substance: INFLIXIMAB-DYYB
     Indication: Crohn^s disease
     Dosage: 7500 UG/KG EVERY 6 WEEK
     Route: 042
     Dates: start: 20190402
  2. INFLECTRA [Suspect]
     Active Substance: INFLIXIMAB-DYYB
     Dosage: 7500 UG/KG EVERY 6 WEEK
     Route: 042
     Dates: start: 20220105
  3. INFLECTRA [Suspect]
     Active Substance: INFLIXIMAB-DYYB
     Dosage: 7500 UG/KG EVERY 6 WEEK
     Route: 042
     Dates: start: 20230127
  4. INFLECTRA [Suspect]
     Active Substance: INFLIXIMAB-DYYB
     Dosage: 7500 UG/KG, (675MG), EVERY 6 WEEK
     Route: 042
     Dates: start: 20230310

REACTIONS (5)
  - Pneumonia [Recovered/Resolved]
  - Off label use [Unknown]
  - Exposure to SARS-CoV-2 [Unknown]
  - Induration [Not Recovered/Not Resolved]
  - Poor venous access [Unknown]

NARRATIVE: CASE EVENT DATE: 20220105
